FAERS Safety Report 8836589 (Version 1)
Quarter: 2012Q4

REPORT INFORMATION
  Report Type: Spontaneous
  Country: US (occurrence: None)
  Receive Date: 20121009
  Receipt Date: 20121009
  Transmission Date: 20130627
  Serious: Yes (Other)
  Sender: FDA-Public Use
  Company Number: 2012SA071271

PATIENT
  Sex: Female

DRUGS (1)
  1. ICY HOT [Suspect]
     Dates: start: 20120924, end: 20120924

REACTIONS (4)
  - Application site burn [None]
  - Skin exfoliation [None]
  - Scab [None]
  - Application site reaction [None]
